FAERS Safety Report 6621645-4 (Version None)
Quarter: 2010Q1

REPORT INFORMATION
  Report Type: 
  Country: None (occurrence: None)
  Receive Date: 20100223
  Receipt Date: 20091105
  Transmission Date: 20100710
  Serious: No
  Sender: FDA-Public Use
  Company Number: 8054272

PATIENT
  Sex: Female
  Weight: 61.2 kg

DRUGS (2)
  1. CERTOLIZUMAB PEGOL [Suspect]
     Indication: CROHN'S DISEASE
     Dosage: (400 MG 1X/MONTH, 400 MG SUBCUTANEOUS)
     Route: 058
     Dates: start: 20091010, end: 20091105
  2. LOMOTIL [Concomitant]

REACTIONS (1)
  - RASH [None]
